FAERS Safety Report 11718615 (Version 1)
Quarter: 2015Q4

REPORT INFORMATION
  Report Type: Spontaneous
  Country: US (occurrence: US)
  Receive Date: 20151110
  Receipt Date: 20151110
  Transmission Date: 20160304
  Serious: Yes (Hospitalization, Other)
  Sender: FDA-Public Use
  Company Number: US-BEH-2015055483

PATIENT
  Sex: Female
  Weight: 141 kg

DRUGS (36)
  1. PREDNISONE. [Concomitant]
     Active Substance: PREDNISONE
  2. REFRESH OPTIVE [Concomitant]
     Active Substance: CARBOXYMETHYLCELLULOSE SODIUM\GLYCERIN
  3. LORATADINE. [Concomitant]
     Active Substance: LORATADINE
  4. VITAMIN C [Concomitant]
     Active Substance: ASCORBIC ACID
  5. LIPITOR [Concomitant]
     Active Substance: ATORVASTATIN CALCIUM
  6. MAGNESIUM [Concomitant]
     Active Substance: MAGNESIUM
  7. DILTIAZEM [Concomitant]
     Active Substance: DILTIAZEM
  8. FLUTICASONE PROPIONATE. [Concomitant]
     Active Substance: FLUTICASONE PROPIONATE
  9. DIPHENHYDRAMINE. [Concomitant]
     Active Substance: DIPHENHYDRAMINE
  10. LANTUS [Concomitant]
     Active Substance: INSULIN GLARGINE
  11. ACETAMINOPHEN. [Concomitant]
     Active Substance: ACETAMINOPHEN
  12. EPIPEN [Concomitant]
     Active Substance: EPINEPHRINE
  13. IPRATROPIUM BROMIDE. [Concomitant]
     Active Substance: IPRATROPIUM BROMIDE
  14. HUMALOG KWICKPEN [Concomitant]
  15. AMITRIPTYLINE [Concomitant]
     Active Substance: AMITRIPTYLINE
  16. HIZENTRA [Suspect]
     Active Substance: HUMAN IMMUNOGLOBULIN G
     Indication: IMMUNODEFICIENCY COMMON VARIABLE
     Route: 058
  17. FUROSEMIDE. [Concomitant]
     Active Substance: FUROSEMIDE
  18. LIDOCAINE/PRILOCAINE [Concomitant]
  19. PROVIGIL [Concomitant]
     Active Substance: MODAFINIL
  20. METOLAZONE. [Concomitant]
     Active Substance: METOLAZONE
  21. ALLOPURINOL. [Concomitant]
     Active Substance: ALLOPURINOL
  22. FERROUS FUMARATE [Concomitant]
     Active Substance: FERROUS FUMARATE
  23. LIDOCAINE. [Concomitant]
     Active Substance: LIDOCAINE
  24. NYSTATIN-TRIAMOLONE [Concomitant]
  25. MULTIVITAMINS [Concomitant]
     Active Substance: VITAMINS
  26. EMOLLIENTS AND PROTECTIVES [Concomitant]
     Active Substance: UNSPECIFIED INGREDIENT
  27. ALDACTONE [Concomitant]
     Active Substance: SPIRONOLACTONE
  28. LYRICA [Concomitant]
     Active Substance: PREGABALIN
  29. CYCLOBENZAPRINE [Concomitant]
     Active Substance: CYCLOBENZAPRINE
  30. ROXICODONE [Concomitant]
     Active Substance: OXYCODONE HYDROCHLORIDE
  31. ABILIFY [Concomitant]
     Active Substance: ARIPIPRAZOLE
  32. MUCINEX [Concomitant]
     Active Substance: GUAIFENESIN
  33. OXYGEN. [Concomitant]
     Active Substance: OXYGEN
  34. EFFEXOR XR [Concomitant]
     Active Substance: VENLAFAXINE HYDROCHLORIDE
  35. LISINOPRIL. [Concomitant]
     Active Substance: LISINOPRIL
  36. PULMICORT TURBUHALER [Concomitant]
     Active Substance: BUDESONIDE

REACTIONS (3)
  - Rib fracture [Unknown]
  - Spinal fracture [Unknown]
  - Fall [Unknown]
